FAERS Safety Report 8837245 (Version 1)
Quarter: 2012Q4

REPORT INFORMATION
  Report Type: 
  Country: NO (occurrence: NO)
  Receive Date: 20121011
  Receipt Date: 20121011
  Transmission Date: 20130627
  Serious: Yes (Other)
  Sender: FDA-Public Use
  Company Number: NO-ROCHE-1082166

PATIENT
  Sex: Male

DRUGS (13)
  1. MABTHERA [Suspect]
     Indication: WEGENER^S GRANULOMATOSIS
     Route: 042
     Dates: start: 200706
  2. MABTHERA [Suspect]
     Indication: MICROSCOPIC POLYANGIITIS
     Dosage: two rituximab infusions of 1000mg each, 2 weeks apart.
     Route: 065
  3. MABTHERA [Suspect]
     Dosage: maintenance dose. Treatment/cumulative dose of Rituximab received was 5000mg prior to LON.
     Route: 065
  4. CELLCEPT [Suspect]
     Indication: WEGENER^S GRANULOMATOSIS
     Route: 065
  5. CELLCEPT [Suspect]
     Indication: MICROSCOPIC POLYANGIITIS
  6. TACROLIMUS [Suspect]
     Indication: MICROSCOPIC POLYANGIITIS
  7. TACROLIMUS [Suspect]
     Indication: WEGENER^S GRANULOMATOSIS
  8. AZATHIOPRINE [Suspect]
     Indication: WEGENER^S GRANULOMATOSIS
     Dosage: 5000 mg
     Route: 065
     Dates: start: 200706
  9. AZATHIOPRINE [Suspect]
     Indication: MICROSCOPIC POLYANGIITIS
  10. CYCLOSPORINE [Suspect]
     Indication: WEGENER^S GRANULOMATOSIS
     Route: 065
  11. CYCLOSPORINE [Suspect]
     Indication: MICROSCOPIC POLYANGIITIS
  12. METHOTREXATE [Suspect]
     Indication: WEGENER^S GRANULOMATOSIS
     Route: 065
  13. CYCLOPHOSPHAMIDE [Suspect]
     Indication: MICROSCOPIC POLYANGIITIS

REACTIONS (2)
  - Neutropenia [Recovered/Resolved]
  - Hypogammaglobulinaemia [Unknown]
